FAERS Safety Report 21068304 (Version 2)
Quarter: 2022Q4

REPORT INFORMATION
  Report Type: Spontaneous
  Country: US (occurrence: US)
  Receive Date: 20220712
  Receipt Date: 20221014
  Transmission Date: 20230113
  Serious: No
  Sender: FDA-Public Use
  Company Number: US-GLENMARK PHARMACEUTICALS-2022GMK071578

PATIENT

DRUGS (2)
  1. DROSPIRENONE\ETHINYL ESTRADIOL [Suspect]
     Active Substance: DROSPIRENONE\ETHINYL ESTRADIOL
     Indication: Oral contraception
     Dosage: 1 DOSAGE FORM, OD
     Route: 048
     Dates: start: 202101, end: 20220330
  2. VITAMINS [Concomitant]
     Active Substance: VITAMINS
     Indication: Systemic immune activation
     Dosage: UNK UNK, OD
     Route: 048

REACTIONS (4)
  - Alopecia [Not Recovered/Not Resolved]
  - Intermenstrual bleeding [Recovered/Resolved]
  - Mood altered [Not Recovered/Not Resolved]
  - Drug ineffective [Unknown]

NARRATIVE: CASE EVENT DATE: 20220201
